FAERS Safety Report 5363189-6 (Version None)
Quarter: 2007Q2

REPORT INFORMATION
  Report Type: 
  Country: None (occurrence: None)
  Receive Date: 20070618
  Receipt Date: 20070618
  Transmission Date: 20071010
  Serious: Yes (Hospitalization)
  Sender: FDA-Public Use
  Company Number: None

PATIENT
  Sex: Female
  Weight: 100 kg

DRUGS (2)
  1. GLEEVEC [Suspect]
     Indication: BREAST CANCER METASTATIC
     Dosage: 400MG BID PO
     Route: 048
     Dates: start: 20070508
  2. TAXOL [Suspect]
     Dosage: 100MG/M2 IV Q 3 OF 4 WK
     Route: 042
     Dates: start: 20070510

REACTIONS (2)
  - BODY TEMPERATURE INCREASED [None]
  - NEUTROPENIA [None]
